FAERS Safety Report 10370767 (Version 1)
Quarter: 2014Q3

REPORT INFORMATION
  Report Type: Spontaneous
  Country: US (occurrence: None)
  Receive Date: 20140807
  Receipt Date: 20140807
  Transmission Date: 20150326
  Serious: Yes (Hospitalization)
  Sender: FDA-Public Use
  Company Number: None

PATIENT
  Age: 71 Year
  Sex: Female
  Weight: 123 kg

DRUGS (34)
  1. DITROPAN [Concomitant]
     Active Substance: OXYBUTYNIN CHLORIDE
  2. FORTEO [Concomitant]
     Active Substance: TERIPARATIDE
  3. HUMALOG [Concomitant]
     Active Substance: INSULIN LISPRO
  4. TAMSULOSIN [Concomitant]
     Active Substance: TAMSULOSIN
  5. BYSTOLIC [Concomitant]
     Active Substance: NEBIVOLOL HYDROCHLORIDE
  6. CATHFLOR ACTIVASE [Concomitant]
  7. NEURONTIN [Concomitant]
     Active Substance: GABAPENTIN
  8. VALACYCLOVIR [Concomitant]
     Active Substance: VALACYCLOVIR HYDROCHLORIDE
  9. MAXIPIME [Suspect]
     Active Substance: CEFEPIME HYDROCHLORIDE
     Indication: SURGERY
     Route: 042
     Dates: start: 20140526, end: 20140601
  10. CULTURELLE [Concomitant]
     Active Substance: LACTOBACILLUS RHAMNOSUS
  11. LOVENOX [Concomitant]
     Active Substance: ENOXAPARIN SODIUM
  12. NYSTOP TOP PWD [Concomitant]
  13. ZOFRAN ODT [Concomitant]
     Active Substance: ONDANSETRON HYDROCHLORIDE
  14. MAXIPIME [Suspect]
     Active Substance: CEFEPIME HYDROCHLORIDE
     Indication: WOUND INFECTION PSEUDOMONAS
     Route: 042
     Dates: start: 20140526, end: 20140601
  15. MAG DELAY CR TAB [Concomitant]
  16. PROTONIX [Concomitant]
     Active Substance: PANTOPRAZOLE SODIUM
  17. SIMVASTATIN. [Concomitant]
     Active Substance: SIMVASTATIN
  18. SLOW RELEASE IRON [Concomitant]
  19. TYLENOL [Concomitant]
     Active Substance: ACETAMINOPHEN
  20. VANCOMYCIN HCL [Concomitant]
     Active Substance: VANCOMYCIN HYDROCHLORIDE
  21. TOBRAMYCIN [Concomitant]
     Active Substance: TOBRAMYCIN
  22. CELEBREX [Concomitant]
     Active Substance: CELECOXIB
  23. MIACALCIN NASAL SPRAY [Concomitant]
  24. OXYCODONE HYDROCHLORIDE IR [Concomitant]
     Active Substance: OXYCODONE HYDROCHLORIDE
  25. SENOKOT [Concomitant]
     Active Substance: SENNOSIDES
  26. VITAMIN D [Concomitant]
     Active Substance: CHOLECALCIFEROL
  27. CEPACOL LOZENGES [Concomitant]
  28. NYSTATIN. [Concomitant]
     Active Substance: NYSTATIN
  29. PEPCID [Concomitant]
     Active Substance: FAMOTIDINE
  30. ROBAXIN [Concomitant]
     Active Substance: METHOCARBAMOL
  31. OXYCODONE 20 MG PO HS [Concomitant]
  32. OXYCODONE HCL CONTROLLED-RELEASE [Concomitant]
     Active Substance: OXYCODONE HYDROCHLORIDE
  33. LASIX [Concomitant]
     Active Substance: FUROSEMIDE
  34. ULTRAM [Concomitant]
     Active Substance: TRAMADOL HYDROCHLORIDE

REACTIONS (3)
  - Confusional state [None]
  - Renal failure acute [None]
  - Status epilepticus [None]

NARRATIVE: CASE EVENT DATE: 20140601
